FAERS Safety Report 4814497-6 (Version None)
Quarter: 2005Q4

REPORT INFORMATION
  Report Type: 
  Country: None (occurrence: None)
  Receive Date: 20051028
  Receipt Date: 20050412
  Transmission Date: 20060501
  Serious: Yes (Hospitalization)
  Sender: FDA-Public Use
  Company Number: US-MERCK-0504USA01842

PATIENT
  Age: 54 Year
  Sex: Male
  Weight: 95 kg

DRUGS (7)
  1. VIOXX [Suspect]
     Indication: ARTHRALGIA
     Route: 048
     Dates: start: 20011001, end: 20030401
  2. ASPIRIN [Concomitant]
     Route: 065
     Dates: start: 19950101
  3. LIPITOR [Concomitant]
     Indication: BLOOD CHOLESTEROL INCREASED
     Route: 065
     Dates: start: 19950101
  4. GLUCOPHAGE [Concomitant]
     Indication: DIABETES MELLITUS
     Route: 065
  5. PREVACID [Concomitant]
     Indication: DYSPEPSIA
     Route: 065
  6. GLUCOTROL [Concomitant]
     Route: 065
     Dates: end: 20030401
  7. GLUCOTROL [Concomitant]
     Route: 065
     Dates: start: 20030401

REACTIONS (7)
  - AGITATION [None]
  - BLOOD GLUCOSE INCREASED [None]
  - BRAIN STEM ISCHAEMIA [None]
  - FEELING ABNORMAL [None]
  - LOSS OF LIBIDO [None]
  - NEURALGIA [None]
  - PALPITATIONS [None]
